FAERS Safety Report 21984040 (Version 1)
Quarter: 2023Q1

REPORT INFORMATION
  Report Type: Spontaneous
  Country: US (occurrence: None)
  Receive Date: 20230209
  Receipt Date: 20230209
  Transmission Date: 20230418
  Serious: Yes (Death)
  Sender: FDA-Public Use
  Company Number: None

PATIENT
  Sex: Male

DRUGS (4)
  1. ABIRATERONE ACETATE [Suspect]
     Active Substance: ABIRATERONE ACETATE
     Dosage: FREQUENCY : DAILY;?
     Route: 048
     Dates: start: 20210904, end: 20230207
  2. VITAMINS [Concomitant]
     Active Substance: VITAMINS
  3. PREDNISONE [Concomitant]
  4. ZOLEDRONIC [Concomitant]

REACTIONS (1)
  - Death [None]
